FAERS Safety Report 11793882 (Version 1)
Quarter: 2015Q4

REPORT INFORMATION
  Report Type: Report from Study
  Country: DE (occurrence: DE)
  Receive Date: 20151202
  Receipt Date: 20151202
  Transmission Date: 20160305
  Serious: Yes (Hospitalization, Other)
  Sender: FDA-Public Use
  Company Number: DE-ROCHE-1571151

PATIENT
  Age: 61 Year
  Sex: Female
  Weight: 57 kg

DRUGS (7)
  1. PERTUZUMAB [Suspect]
     Active Substance: PERTUZUMAB
     Indication: BREAST CANCER
     Dosage: ON 14/APR/2015 SHE HAD MOST RECENT DOSE PRIOR TO NAUSEA AND VOMITING?ON 01/JUL/2015 SHE HAD MOST REC
     Route: 042
     Dates: start: 20150323
  2. TRASTUZUMAB [Suspect]
     Active Substance: TRASTUZUMAB
     Dosage: ON 17/JUN/2015, SHE HAD MOST RECENT DOSE PRIOR TO INFLUENZA A
     Route: 042
  3. PACLITAXEL. [Suspect]
     Active Substance: PACLITAXEL
     Indication: BREAST CANCER
     Dosage: ON 20/APR/2015, SHE HAD MOST RECENT DOSE PRIOR TO SAE
     Route: 042
     Dates: start: 20150323, end: 20150427
  4. PACLITAXEL. [Suspect]
     Active Substance: PACLITAXEL
     Dosage: ON 01/JUL/2015, SHE HAD MOST RECENT DOSE PRIOR TO INFLUENZA A
     Route: 042
  5. LIPOSOMAL DOXORUBICIN [Suspect]
     Active Substance: DOXORUBICIN HYDROCHLORIDE
     Dosage: ON 1/JUL/2015, SHE HAD MOST RECENT DOSE PRIOR TO SAE
     Route: 042
  6. TRASTUZUMAB [Suspect]
     Active Substance: TRASTUZUMAB
     Indication: BREAST CANCER
     Dosage: ON 13/APR/2015, SHE HAD MOST RECENT DOSE PRIOR TO SAE?ON 17/JUN/2015 SHE HAD MOST RECENT DOSE PRIOR
     Route: 042
     Dates: start: 20150323
  7. LIPOSOMAL DOXORUBICIN [Suspect]
     Active Substance: DOXORUBICIN HYDROCHLORIDE
     Indication: BREAST CANCER
     Dosage: ON 20/APR/2015, SHE HAD MOST RECENT DOSE PRIOR TO SAE
     Route: 042
     Dates: start: 20150323, end: 20150427

REACTIONS (4)
  - Influenza [Recovered/Resolved]
  - Nausea [Not Recovered/Not Resolved]
  - Vomiting [Not Recovered/Not Resolved]
  - Ejection fraction decreased [Recovering/Resolving]

NARRATIVE: CASE EVENT DATE: 20150427
